FAERS Safety Report 12196573 (Version 1)
Quarter: 2016Q1

REPORT INFORMATION
  Report Type: Spontaneous
  Country: US (occurrence: US)
  Receive Date: 20160321
  Receipt Date: 20160321
  Transmission Date: 20160526
  Serious: Yes (Other)
  Sender: FDA-Public Use
  Company Number: US-BRISTOL-MYERS SQUIBB COMPANY-BMS-2016-020110

PATIENT
  Age: 49 Year
  Sex: Male
  Weight: 89.34 kg

DRUGS (3)
  1. ABILIFY [Suspect]
     Active Substance: ARIPIPRAZOLE
     Indication: DEPRESSION
     Dosage: 15 MG, QD
     Route: 048
  2. ZOLOFT [Concomitant]
     Active Substance: SERTRALINE HYDROCHLORIDE
     Indication: PRODUCT USED FOR UNKNOWN INDICATION
     Route: 065
  3. ABILIFY [Suspect]
     Active Substance: ARIPIPRAZOLE
     Indication: DEPRESSION
     Dosage: UNK
     Route: 065
     Dates: end: 20160311

REACTIONS (11)
  - Blindness [Unknown]
  - Memory impairment [Unknown]
  - Coma [Unknown]
  - Hallucination [Unknown]
  - Treatment noncompliance [Unknown]
  - Weight increased [Not Recovered/Not Resolved]
  - Walking disability [Unknown]
  - Delusion [Unknown]
  - Nightmare [Unknown]
  - Disorientation [Unknown]
  - Feeling abnormal [Unknown]
